FAERS Safety Report 20898696 (Version 3)
Quarter: 2022Q2

REPORT INFORMATION
  Report Type: Report from Study
  Country: GB (occurrence: GB)
  Receive Date: 20220601
  Receipt Date: 20220607
  Transmission Date: 20220721
  Serious: Yes (Death, Hospitalization)
  Sender: FDA-Public Use
  Company Number: GB-AMGEN-GBRCT2022043029

PATIENT
  Age: 50 Year
  Sex: Male
  Weight: 77.8 kg

DRUGS (25)
  1. BLINATUMOMAB [Suspect]
     Active Substance: BLINATUMOMAB
     Indication: Acute lymphocytic leukaemia
     Dosage: 28 MICROGRAM
     Route: 042
     Dates: start: 20211201
  2. ZELUVALIMAB [Suspect]
     Active Substance: ZELUVALIMAB
     Indication: Acute lymphocytic leukaemia
     Dosage: 480 MILLIGRAM
     Route: 042
     Dates: start: 20211129
  3. PRIVIGEN [Concomitant]
     Active Substance: HUMAN IMMUNOGLOBULIN G
     Dosage: 0.4 UNK
     Route: 042
     Dates: start: 20181022
  4. AZITHROMYCIN [Concomitant]
     Active Substance: AZITHROMYCIN
     Dosage: 250 MILLIGRAM
     Route: 048
     Dates: start: 20211130, end: 20220311
  5. ACETAMINOPHEN [Concomitant]
     Active Substance: ACETAMINOPHEN
     Dosage: 1000 MILLIGRAM
     Route: 048
     Dates: start: 20190415, end: 20220312
  6. LANSOPRAZOLE [Concomitant]
     Active Substance: LANSOPRAZOLE
     Dosage: 30 MILLIGRAM
     Route: 048
     Dates: start: 20210401
  7. AMOXICILLIN\CLAVULANATE POTASSIUM [Concomitant]
     Active Substance: AMOXICILLIN\CLAVULANATE POTASSIUM
     Dosage: 250-625 MILLIGRAM
     Route: 048
     Dates: start: 20190409
  8. SULFADIAZINE [Concomitant]
     Active Substance: SULFADIAZINE
     Dosage: 500 MILLIGRAM
     Route: 048
     Dates: start: 20180221, end: 20220310
  9. VORICONAZOLE [Concomitant]
     Active Substance: VORICONAZOLE
     Dosage: 200 MILLIGRAM
     Route: 048
     Dates: start: 20211211
  10. SENNOSIDES A AND B [Concomitant]
     Active Substance: SENNOSIDES A AND B
     Dosage: 15 MILLIGRAM
     Route: 048
     Dates: start: 20211229
  11. DARAPRIM [Concomitant]
     Active Substance: PYRIMETHAMINE
     Dosage: 25 MILLIGRAM
     Route: 048
     Dates: start: 20180221
  12. LEUCOVORIN CALCIUM [Concomitant]
     Active Substance: LEUCOVORIN CALCIUM
     Dosage: 15 MILLIGRAM
     Route: 048
     Dates: start: 20190409, end: 20220311
  13. POTASSIUM [Concomitant]
     Active Substance: POTASSIUM
     Dosage: 2 UNK
     Route: 048
     Dates: start: 20220302, end: 20220305
  14. AMILORIDE [Concomitant]
     Active Substance: AMILORIDE
     Dosage: 5 MILLIGRAM
     Route: 048
     Dates: start: 20220112, end: 20220221
  15. PENICILLIN V [Concomitant]
     Active Substance: PENICILLIN V
     Dosage: 250 MILLIGRAM
     Route: 048
     Dates: start: 20211206
  16. ACYCLOVIR [Concomitant]
     Active Substance: ACYCLOVIR
     Dosage: 200 MILLIGRAM
     Route: 048
     Dates: start: 20220114
  17. URSODIOL [Concomitant]
     Active Substance: URSODIOL
     Dosage: 150 MILLIGRAM
     Route: 048
     Dates: start: 20210401
  18. SERTRALINE [Concomitant]
     Active Substance: SERTRALINE HYDROCHLORIDE
     Dosage: 50 MILLIGRAM
     Route: 048
     Dates: start: 20220126
  19. ZOPICLONE [Concomitant]
     Active Substance: ZOPICLONE
     Dosage: 7.5 MILLIGRAM
     Route: 048
     Dates: start: 20220126, end: 20220222
  20. KEPPRA [Concomitant]
     Active Substance: LEVETIRACETAM
     Dosage: 500 MILLIGRAM
     Route: 042
     Dates: start: 20220202, end: 20220211
  21. DEXAMETHASONE [Concomitant]
     Active Substance: DEXAMETHASONE
     Dosage: 20 MILLIGRAM
     Dates: start: 20220210, end: 20220210
  22. DERMOL [Concomitant]
     Active Substance: BENZALKONIUM CHLORIDE\CHLORHEXIDINE HYDROCHLORIDE\ISOPROPYL MYRISTATE\PARAFFIN
     Dosage: 500 MILLIGRAM
     Route: 061
     Dates: start: 20210208
  23. MOVICOL [Concomitant]
     Active Substance: POLYETHYLENE GLYCOL 3350\POTASSIUM CHLORIDE\SODIUM BICARBONATE\SODIUM CHLORIDE
     Dosage: 1 UNK
     Route: 048
     Dates: start: 20211229
  24. PFIZER-BIONTECH COVID-19 VACCINE [Concomitant]
     Active Substance: TOZINAMERAN
     Dosage: UNK
     Route: 030
     Dates: start: 20220115
  25. LEVETIRACETAM [Concomitant]
     Active Substance: LEVETIRACETAM
     Dosage: 500- 750 MILLIGRAM
     Route: 048
     Dates: start: 20220211

REACTIONS (2)
  - Seizure [Recovered/Resolved]
  - Acute lymphocytic leukaemia recurrent [Fatal]

NARRATIVE: CASE EVENT DATE: 20220307
